FAERS Safety Report 8259720-3 (Version None)
Quarter: 2012Q2

REPORT INFORMATION
  Report Type: 
  Country: None (occurrence: None)
  Receive Date: 20120404
  Receipt Date: 20120328
  Transmission Date: 20120825
  Serious: Yes (Other)
  Sender: FDA-Public Use
  Company Number: CH-JNJFOC-20120313248

PATIENT
  Age: 41 Year
  Sex: Male
  Weight: 180 kg

DRUGS (5)
  1. HALDOL [Concomitant]
     Route: 065
  2. XEPLION [Suspect]
     Route: 030
     Dates: start: 20120313, end: 20120313
  3. SOLIAN [Concomitant]
     Route: 065
  4. XEPLION [Suspect]
     Indication: SCHIZOPHRENIA
     Route: 030
     Dates: start: 20120306, end: 20120306
  5. LAMOTRIGINE [Concomitant]
     Route: 065

REACTIONS (1)
  - DYSPNOEA [None]
